FAERS Safety Report 14957138 (Version 1)
Quarter: 2018Q2

REPORT INFORMATION
  Report Type: Spontaneous
  Country: US (occurrence: US)
  Receive Date: 20180509
  Receipt Date: 20180509
  Transmission Date: 20180711
  Serious: Yes (Other)
  Sender: FDA-Public Use
  Company Number: None

PATIENT
  Age: 59 Year
  Sex: Male
  Weight: 69.85 kg

DRUGS (6)
  1. HYDROCORTISONE. [Concomitant]
     Active Substance: HYDROCORTISONE
  2. GAMMAGARD [Suspect]
     Active Substance: HUMAN IMMUNOGLOBULIN G
     Indication: STIFF PERSON SYNDROME
     Route: 042
     Dates: start: 20180502, end: 20180502
  3. GAMMAGARD [Suspect]
     Active Substance: HUMAN IMMUNOGLOBULIN G
     Indication: STIFF PERSON SYNDROME
     Route: 042
     Dates: start: 20180502, end: 20180502
  4. GAMMAGARD [Suspect]
     Active Substance: HUMAN IMMUNOGLOBULIN G
     Route: 042
     Dates: start: 20180502, end: 20180502
  5. NORMAL SALINE 0.9% [Concomitant]
  6. NORMAL SALINE 0.9% FLUSH [Concomitant]

REACTIONS (8)
  - Musculoskeletal stiffness [None]
  - Microcytic anaemia [None]
  - Dyspnoea [None]
  - Cough [None]
  - Pyrexia [None]
  - Paraesthesia [None]
  - Sepsis [None]
  - Pneumonia [None]

NARRATIVE: CASE EVENT DATE: 20180502
